FAERS Safety Report 25925339 (Version 2)
Quarter: 2025Q4

REPORT INFORMATION
  Report Type: Report from Study
  Country: US (occurrence: US)
  Receive Date: 20251015
  Receipt Date: 20251023
  Transmission Date: 20260118
  Serious: Yes (Hospitalization, Other)
  Sender: ALNYLAM PHARMACEUTICALS
  Company Number: US-ALNYLAM PHARMACEUTICALS, INC.-ALN-2025-004061

PATIENT
  Weight: 77.098 kg

DRUGS (2)
  1. GIVLAARI [Suspect]
     Active Substance: GIVOSIRAN SODIUM
     Indication: Porphyria acute
     Dosage: UNK
     Route: 065
  2. HEMIN [Concomitant]
     Active Substance: HEMIN
     Indication: Porphyria acute
     Dosage: UNK, TWICE A WEEK
     Route: 065

REACTIONS (8)
  - Porphyria acute [Recovering/Resolving]
  - Weight fluctuation [Unknown]
  - Oedema [Unknown]
  - Dyspnoea [Unknown]
  - Hepatic steatosis [Unknown]
  - Hypertension [Unknown]
  - Gait inability [Unknown]
  - General physical condition abnormal [Unknown]
